FAERS Safety Report 23922578 (Version 3)
Quarter: 2024Q2

REPORT INFORMATION
  Report Type: Spontaneous
  Country: US (occurrence: US)
  Receive Date: 20240531
  Receipt Date: 20240621
  Transmission Date: 20240716
  Serious: Yes (Other)
  Sender: FDA-Public Use
  Company Number: US-ROCHE-3572477

PATIENT
  Age: 58 Year
  Sex: Female
  Weight: 52.16 kg

DRUGS (4)
  1. OCREVUS [Suspect]
     Active Substance: OCRELIZUMAB
     Indication: Relapsing-remitting multiple sclerosis
     Dosage: MOST RECENT DOSE OF OCREVUS WAS ADMINISTERED ON 07/MAY/2024
     Route: 065
     Dates: start: 20221021, end: 20221108
  2. COPAXONE [Concomitant]
     Active Substance: GLATIRAMER ACETATE
  3. REBIF [Concomitant]
     Active Substance: INTERFERON BETA-1A
  4. TYSABRI [Concomitant]
     Active Substance: NATALIZUMAB

REACTIONS (1)
  - Invasive ductal breast carcinoma [Unknown]

NARRATIVE: CASE EVENT DATE: 20240501
